FAERS Safety Report 15457013 (Version 2)
Quarter: 2018Q4

REPORT INFORMATION
  Report Type: Spontaneous
  Country: CA (occurrence: CA)
  Receive Date: 20181002
  Receipt Date: 20181010
  Transmission Date: 20190204
  Serious: Yes (Hospitalization)
  Sender: FDA-Public Use
  Company Number: CA-ACTELION-A-US2018-178222

PATIENT
  Age: 64 Year
  Sex: Male

DRUGS (14)
  1. FERROUS SULFATE. [Concomitant]
     Active Substance: FERROUS SULFATE
  2. ASACOL [Concomitant]
     Active Substance: MESALAMINE
  3. BOSUTINIB [Concomitant]
     Active Substance: BOSUTINIB
  4. ASA [Concomitant]
     Active Substance: ASPIRIN
  5. ADCIRCA [Concomitant]
     Active Substance: TADALAFIL
  6. CEFAZOLIN [Concomitant]
     Active Substance: CEFAZOLIN
  7. UPTRAVI [Suspect]
     Active Substance: SELEXIPAG
     Indication: PULMONARY ARTERIAL HYPERTENSION
     Dosage: 1600 MCG, UNK
     Route: 048
  8. SYNTHROID [Concomitant]
     Active Substance: LEVOTHYROXINE SODIUM
  9. VITAMIN D3 [Concomitant]
     Active Substance: CHOLECALCIFEROL
  10. METOPROLOL. [Concomitant]
     Active Substance: METOPROLOL
  11. UPTRAVI [Suspect]
     Active Substance: SELEXIPAG
     Dosage: UNK
     Route: 048
     Dates: start: 20180302
  12. TRACLEER [Suspect]
     Active Substance: BOSENTAN
     Indication: PULMONARY ARTERIAL HYPERTENSION
     Dosage: 125 MG, UNK
     Route: 048
     Dates: start: 20180302
  13. ATORVASTATIN [Concomitant]
     Active Substance: ATORVASTATIN
  14. FUROSEMIDE. [Concomitant]
     Active Substance: FUROSEMIDE

REACTIONS (6)
  - Chest tube insertion [Recovered/Resolved]
  - Myalgia [Not Recovered/Not Resolved]
  - Product dose omission [Unknown]
  - Diarrhoea [Not Recovered/Not Resolved]
  - Catheter placement [Recovering/Resolving]
  - Mass [Not Recovered/Not Resolved]

NARRATIVE: CASE EVENT DATE: 201808
